FAERS Safety Report 6693650-3 (Version None)
Quarter: 2010Q2

REPORT INFORMATION
  Report Type: 
  Country: None (occurrence: None)
  Receive Date: 20100420
  Receipt Date: 20100409
  Transmission Date: 20101027
  Serious: Yes (Other)
  Sender: FDA-Public Use
  Company Number: A-JP2009-24111

PATIENT
  Age: 17 Year
  Sex: Male

DRUGS (2)
  1. TRACLEER [Suspect]
     Indication: PULMONARY ARTERIAL HYPERTENSION
     Dosage: ORAL
     Route: 048
     Dates: start: 20060101, end: 20070101
  2. EPOPROSTENOL (EPOPROSENOL) [Suspect]

REACTIONS (3)
  - HAEMOPTYSIS [None]
  - HEPATIC FUNCTION ABNORMAL [None]
  - PULMONARY ALVEOLAR HAEMORRHAGE [None]
